FAERS Safety Report 21286176 (Version 1)
Quarter: 2022Q3

REPORT INFORMATION
  Report Type: Spontaneous
  Country: US (occurrence: None)
  Receive Date: 20220901
  Receipt Date: 20220901
  Transmission Date: 20221026
  Serious: Yes (Hospitalization)
  Sender: FDA-Public Use
  Company Number: None

PATIENT
  Age: 49 Year
  Sex: Female
  Weight: 48.6 kg

DRUGS (14)
  1. SALINE LAXATIVE [Suspect]
     Active Substance: SODIUM PHOSPHATE, DIBASIC\SODIUM PHOSPHATE, MONOBASIC
     Indication: Constipation
     Dosage: OTHER FREQUENCY : 1;?
     Dates: start: 20220627, end: 20220627
  2. ATORVASTATIN [Concomitant]
     Active Substance: ATORVASTATIN
  3. LISINOPRIL [Concomitant]
     Active Substance: LISINOPRIL
  4. METOPROLOL [Concomitant]
     Active Substance: METOPROLOL
  5. PREGABALIN [Concomitant]
     Active Substance: PREGABALIN
  6. OXYCODONE [Concomitant]
     Active Substance: OXYCODONE
  7. LANTUS [Concomitant]
     Active Substance: INSULIN GLARGINE
  8. VICTOZA [Concomitant]
     Active Substance: LIRAGLUTIDE
  9. Ferrus glucunate [Concomitant]
  10. ONDANSETRON [Concomitant]
     Active Substance: ONDANSETRON
  11. TYLENOL [Concomitant]
     Active Substance: ACETAMINOPHEN
  12. VITAMIN B COMPLEX [Concomitant]
     Active Substance: CYANOCOBALAMIN\DEXPANTHENOL\NIACINAMIDE\PYRIDOXINE HYDROCHLORIDE\RIBOFLAVIN 5^-PHOSPHATE SODIUM\THIA
  13. VITAMIN D3 [Concomitant]
     Active Substance: CHOLECALCIFEROL
  14. ALPHA LIPOIC ACID [Concomitant]
     Active Substance: .ALPHA.-LIPOIC ACID

REACTIONS (4)
  - Diarrhoea [None]
  - Vomiting [None]
  - Abdominal pain [None]
  - Chest pain [None]

NARRATIVE: CASE EVENT DATE: 20220627
